FAERS Safety Report 18924291 (Version 2)
Quarter: 2021Q1

REPORT INFORMATION
  Report Type: Report from Study
  Country: JP (occurrence: JP)
  Receive Date: 20210222
  Receipt Date: 20210226
  Transmission Date: 20210420
  Serious: Yes (Death, Hospitalization)
  Sender: FDA-Public Use
  Company Number: JP-GILEAD-2021-0517750

PATIENT
  Age: 86 Year
  Sex: Male

DRUGS (12)
  1. BENIDIPINE HYDROCHLORIDE [Concomitant]
     Active Substance: BENIDIPINE HYDROCHLORIDE
     Indication: HYPERTENSION
     Route: 048
     Dates: end: 20201117
  2. INSULIN [Concomitant]
     Active Substance: INSULIN NOS
     Indication: DIABETES PROPHYLAXIS
     Route: 058
     Dates: start: 20201111, end: 20201121
  3. GATIFLO [Concomitant]
     Active Substance: GATIFLOXACIN
     Route: 047
     Dates: end: 20201118
  4. BROMFENAC SODIUM [Concomitant]
     Active Substance: BROMFENAC SODIUM
     Route: 047
     Dates: end: 20201118
  5. REMDESIVIR. [Suspect]
     Active Substance: REMDESIVIR
     Indication: COVID-19
     Dosage: 200 MG, QD
     Route: 042
     Dates: start: 20201111, end: 20201111
  6. RABEPRAZOLE SODIUM. [Concomitant]
     Active Substance: RABEPRAZOLE SODIUM
     Indication: PROPHYLAXIS AGAINST GASTROINTESTINAL ULCER
     Route: 048
     Dates: start: 20201111, end: 20201117
  7. VITAMEDIN [BENFOTIAMINE;CYANOCOBALAMIN;PYRIDOXINE HYDROCHLORIDE] [Concomitant]
     Indication: VITAMIN SUPPLEMENTATION
     Route: 042
     Dates: start: 20201111, end: 20201122
  8. BETAMETHASONE. [Concomitant]
     Active Substance: BETAMETHASONE
     Route: 047
     Dates: end: 20201118
  9. OLMESARTAN [OLMESARTAN MEDOXOMIL] [Concomitant]
     Active Substance: OLMESARTAN MEDOXOMIL
     Indication: HYPERTENSION
     Route: 048
     Dates: end: 20201117
  10. REMDESIVIR. [Suspect]
     Active Substance: REMDESIVIR
     Dosage: 100 MG, QD
     Route: 042
     Dates: start: 20201112, end: 20201120
  11. FUROSEMIDE. [Concomitant]
     Active Substance: FUROSEMIDE
     Indication: DIURETIC THERAPY
     Route: 042
     Dates: start: 20201111, end: 20201117
  12. DEXAMETHASONE SODIUM PHOSPHATE. [Concomitant]
     Active Substance: DEXAMETHASONE SODIUM PHOSPHATE
     Indication: COVID-19
     Dosage: UNK
     Dates: start: 20201111, end: 20201120

REACTIONS (1)
  - Coronavirus infection [Fatal]

NARRATIVE: CASE EVENT DATE: 20201111
